FAERS Safety Report 9263329 (Version 1)
Quarter: 2013Q2

REPORT INFORMATION
  Report Type: Spontaneous
  Country: US (occurrence: US)
  Receive Date: 20130430
  Receipt Date: 20130430
  Transmission Date: 20140414
  Serious: No
  Sender: FDA-Public Use
  Company Number: US-ABBOTT-12P-163-1024656-00

PATIENT
  Age: 74 Year
  Sex: Female
  Weight: 60.84 kg

DRUGS (9)
  1. CREON [Suspect]
     Indication: PANCREATIC INSUFFICIENCY
     Dosage: CREON6: 2 CAPSULES WITH EACH MEAL AND ONE WITH SNACKS.
     Dates: start: 20121218
  2. LISINOPRIL [Concomitant]
     Indication: HYPERTENSION
  3. LIPITOR [Concomitant]
     Indication: BLOOD CHOLESTEROL INCREASED
  4. AMARYL [Concomitant]
     Indication: DIABETES MELLITUS
  5. VITAMIN C [Concomitant]
     Indication: PRODUCT USED FOR UNKNOWN INDICATION
  6. VITAMIN D [Concomitant]
     Indication: PRODUCT USED FOR UNKNOWN INDICATION
  7. VITAMINE E [Concomitant]
     Indication: PRODUCT USED FOR UNKNOWN INDICATION
  8. MULTIVITAMIN [Concomitant]
     Indication: PRODUCT USED FOR UNKNOWN INDICATION
  9. ASPIRIN [Concomitant]
     Indication: CARDIAC DISORDER

REACTIONS (1)
  - Diarrhoea [Not Recovered/Not Resolved]
